FAERS Safety Report 5965728-0 (Version None)
Quarter: 2008Q4

REPORT INFORMATION
  Report Type: 
  Country: None (occurrence: None)
  Receive Date: 20081125
  Receipt Date: 20081121
  Transmission Date: 20090506
  Serious: Yes (Hospitalization)
  Sender: FDA-Public Use
  Company Number: A0758169A

PATIENT
  Sex: Female

DRUGS (7)
  1. ADVAIR HFA [Suspect]
     Indication: EMPHYSEMA
     Route: 055
  2. ADVAIR HFA [Suspect]
     Route: 055
  3. ATENOLOL [Concomitant]
  4. DUONEB [Concomitant]
  5. XOPENEX [Concomitant]
  6. VITAMIN D [Concomitant]
  7. GLAUCOMA EYE DROPS (UNSPECIFIED) [Concomitant]

REACTIONS (7)
  - APHONIA [None]
  - CARDIAC FAILURE CONGESTIVE [None]
  - DRUG INEFFECTIVE [None]
  - DYSPNOEA [None]
  - INTRAOCULAR PRESSURE TEST ABNORMAL [None]
  - LOSS OF CONSCIOUSNESS [None]
  - PULMONARY OEDEMA [None]
